FAERS Safety Report 9238667 (Version 1)
Quarter: 2013Q2

REPORT INFORMATION
  Report Type: Spontaneous
  Country: US (occurrence: None)
  Receive Date: 20130417
  Receipt Date: 20130417
  Transmission Date: 20140414
  Serious: Yes (Other)
  Sender: FDA-Public Use
  Company Number: None

PATIENT
  Age: 30 Year
  Sex: Female
  Weight: 83.46 kg

DRUGS (1)
  1. ALPRAZOLAM [Suspect]
     Indication: ANXIETY
     Dosage: 0.25MG TID PRN PO
     Route: 048
     Dates: start: 20121211, end: 20130115

REACTIONS (3)
  - Anxiety [None]
  - Panic attack [None]
  - Product substitution issue [None]
